FAERS Safety Report 9104433 (Version 1)
Quarter: 2013Q1

REPORT INFORMATION
  Report Type: Spontaneous
  Country: US (occurrence: US)
  Receive Date: 20130220
  Receipt Date: 20130220
  Transmission Date: 20140127
  Serious: No
  Sender: FDA-Public Use
  Company Number: US-BAYER-2013-020894

PATIENT
  Age: 76 Year
  Sex: Female
  Weight: 54 kg

DRUGS (4)
  1. ALEVE CAPLET/TABLET,MIDOL EXTENDED RELIEF CAPLET [Suspect]
     Dosage: 1 DF, QD
     Route: 048
  2. CORTISON [Concomitant]
  3. TYLENOL NOS [Concomitant]
  4. PREDNISONE [Concomitant]

REACTIONS (1)
  - Pruritus [Recovered/Resolved]
